FAERS Safety Report 6406835-8 (Version None)
Quarter: 2009Q4

REPORT INFORMATION
  Report Type: 
  Country: None (occurrence: None)
  Receive Date: 20091020
  Receipt Date: 20091012
  Transmission Date: 20100525
  Serious: Yes (Hospitalization)
  Sender: FDA-Public Use
  Company Number: FI-ASTRAZENECA-2009SE19582

PATIENT
  Age: 17297 Day
  Sex: Female

DRUGS (7)
  1. SEROQUEL [Suspect]
     Indication: PSYCHOTIC DISORDER
     Route: 048
     Dates: start: 20090919, end: 20090924
  2. SINEMET [Concomitant]
     Indication: PARKINSON'S DISEASE
     Dosage: 50 MG/ 200 MG
     Route: 048
  3. SIFROL [Concomitant]
     Indication: PARKINSON'S DISEASE
     Route: 048
  4. SPASMO-LYT PLUS [Concomitant]
     Route: 048
  5. DIAPAM [Concomitant]
     Indication: PSYCHOTIC DISORDER
     Route: 048
  6. STALEVO 100 [Concomitant]
     Indication: PARKINSON'S DISEASE
     Dosage: 100 MG/25 MG/200 MG, ONCE A WEEK
     Route: 048
  7. AZILECT [Concomitant]
     Indication: PARKINSON'S DISEASE
     Route: 048

REACTIONS (1)
  - NEUTROPENIA [None]
